FAERS Safety Report 9697016 (Version 1)
Quarter: 2013Q4

REPORT INFORMATION
  Report Type: Spontaneous
  Country: RU (occurrence: RU)
  Receive Date: 20131119
  Receipt Date: 20131119
  Transmission Date: 20140711
  Serious: Yes (Other)
  Sender: FDA-Public Use
  Company Number: RU-ROCHE-1304754

PATIENT
  Age: 68 Year
  Sex: Female

DRUGS (3)
  1. HERCEPTIN [Suspect]
     Indication: HER-2 POSITIVE BREAST CANCER
     Route: 065
     Dates: start: 20130829
  2. HERCEPTIN [Suspect]
     Route: 065
     Dates: start: 201309
  3. TAMOXIFEN [Concomitant]
     Indication: BREAST CANCER

REACTIONS (1)
  - Hypertriglyceridaemia [Not Recovered/Not Resolved]
